FAERS Safety Report 16952888 (Version 7)
Quarter: 2022Q2

REPORT INFORMATION
  Report Type: Spontaneous
  Country: US (occurrence: US)
  Receive Date: 20191023
  Receipt Date: 20220519
  Transmission Date: 20220721
  Serious: Yes (Other)
  Sender: FDA-Public Use
  Company Number: US-PFIZER INC-2018317106

PATIENT
  Age: 27 Year
  Sex: Female
  Weight: 51 kg

DRUGS (3)
  1. PRISTIQ EXTENDED-RELEASE [Suspect]
     Active Substance: DESVENLAFAXINE SUCCINATE
     Indication: Depression
     Dosage: 50 MG, 1X/DAY
     Route: 048
  2. PRISTIQ EXTENDED-RELEASE [Suspect]
     Active Substance: DESVENLAFAXINE SUCCINATE
     Indication: Lyme disease
  3. PRISTIQ EXTENDED-RELEASE [Suspect]
     Active Substance: DESVENLAFAXINE SUCCINATE
     Indication: Post-traumatic stress disorder

REACTIONS (11)
  - Mental impairment [Unknown]
  - Drug ineffective [Unknown]
  - Fibromyalgia [Unknown]
  - Pain [Unknown]
  - Feeling abnormal [Unknown]
  - Neurological symptom [Unknown]
  - Post-traumatic stress disorder [Unknown]
  - Illness [Unknown]
  - Fatigue [Unknown]
  - Back pain [Unknown]
  - Memory impairment [Unknown]
